FAERS Safety Report 11057527 (Version 1)
Quarter: 2015Q2

REPORT INFORMATION
  Report Type: Spontaneous
  Country: ZA (occurrence: ZA)
  Receive Date: 20150422
  Receipt Date: 20150422
  Transmission Date: 20150821
  Serious: Yes (Other)
  Sender: FDA-Public Use
  Company Number: PHHY2015ZA044804

PATIENT
  Sex: Female

DRUGS (1)
  1. HEXA-BLOK [Suspect]
     Active Substance: ATENOLOL
     Indication: PRODUCT USED FOR UNKNOWN INDICATION
     Route: 065

REACTIONS (5)
  - Tremor [Unknown]
  - Angina pectoris [Unknown]
  - Myalgia [Unknown]
  - Dizziness [Unknown]
  - Hypotension [Unknown]
